FAERS Safety Report 8476870 (Version 3)
Quarter: 2015Q2

REPORT INFORMATION
  Report Type: Spontaneous
  Country: US (occurrence: US)
  Receive Date: 20120326
  Receipt Date: 20150520
  Transmission Date: 20150821
  Serious: Yes (Life-Threatening, Hospitalization, Congenital Anomaly, Other)
  Sender: FDA-Public Use
  Company Number: US-ELI_LILLY_AND_COMPANY-US201203004330

PATIENT

DRUGS (3)
  1. FERROUS SULFATE [Concomitant]
     Active Substance: FERROUS SULFATE\FERROUS SULFATE, DRIED
  2. PRENATAL VITAMINS                  /08195401/ [Concomitant]
  3. PROZAC [Suspect]
     Active Substance: FLUOXETINE HYDROCHLORIDE
     Indication: DEPRESSION
     Dosage: 20 MG, QD
     Route: 064
     Dates: start: 199607

REACTIONS (9)
  - Neurogenic bowel [Unknown]
  - Hydronephrosis [Unknown]
  - Neural tube defect [Unknown]
  - Arnold-Chiari malformation [Unknown]
  - Foetal exposure during pregnancy [Recovered/Resolved with Sequelae]
  - Meningomyelocele [Unknown]
  - Hydrocephalus [Unknown]
  - Neurogenic bladder [Unknown]
  - Talipes [Unknown]
